FAERS Safety Report 23572377 (Version 3)
Quarter: 2024Q2

REPORT INFORMATION
  Report Type: Spontaneous
  Country: US (occurrence: US)
  Receive Date: 20240227
  Receipt Date: 20240531
  Transmission Date: 20240715
  Serious: Yes (Hospitalization)
  Sender: FDA-Public Use
  Company Number: US-AVADEL CNS PHARMACEUTICALS, LLC-2024AVA00070

PATIENT
  Sex: Male

DRUGS (2)
  1. LUMRYZ [Suspect]
     Active Substance: SODIUM OXYBATE
     Indication: Narcolepsy
     Dosage: 9 G, ONCE NIGHTLY
     Dates: start: 20231026
  2. LUMRYZ [Suspect]
     Active Substance: SODIUM OXYBATE
     Indication: Cataplexy

REACTIONS (8)
  - Hospitalisation [Unknown]
  - Peripheral vascular disorder [Not Recovered/Not Resolved]
  - Erythema [Not Recovered/Not Resolved]
  - Haemorrhage [Not Recovered/Not Resolved]
  - Skin disorder [Unknown]
  - Peripheral swelling [Not Recovered/Not Resolved]
  - Pain in extremity [Not Recovered/Not Resolved]
  - Product administration interrupted [Unknown]
